FAERS Safety Report 5891573-0 (Version None)
Quarter: 2008Q3

REPORT INFORMATION
  Report Type: 
  Country: None (occurrence: None)
  Receive Date: 20080918
  Receipt Date: 20080904
  Transmission Date: 20090109
  Serious: Yes (Life-Threatening, Hospitalization)
  Sender: FDA-Public Use
  Company Number: 2008001592

PATIENT
  Age: 70 Year
  Sex: Male
  Weight: 54.6 kg

DRUGS (11)
  1. ERLOTINIB (ERLITINIB) (TABLET) (ERLOTINIB) [Suspect]
     Indication: LUNG ADENOCARCINOMA
     Dosage: (150 MG, QD), ORAL
     Route: 048
     Dates: start: 20080611, end: 20080804
  2. TAZOCIN (PIP/TAZO) (INJECTION FOR INFUSION) [Concomitant]
  3. LANSOPRAZOLE [Concomitant]
  4. CODEINE PHOSPHATE (CODEINE PHOSPHATE) [Concomitant]
  5. CYTOTEC [Concomitant]
  6. ETODOLAC [Concomitant]
  7. DUROTEP [Concomitant]
  8. FAMOTIDINE [Concomitant]
  9. CEFMATAZOLE SODIUM [Concomitant]
  10. MAGMITT [Concomitant]
  11. MUCOSTA [Concomitant]

REACTIONS (20)
  - ADENOCARCINOMA [None]
  - AORTIC VALVE INCOMPETENCE [None]
  - BLOOD PRESSURE DECREASED [None]
  - CARDIAC TAMPONADE [None]
  - CHOLECYSTITIS [None]
  - DEPRESSED LEVEL OF CONSCIOUSNESS [None]
  - DISEASE PROGRESSION [None]
  - HEPATIC FUNCTION ABNORMAL [None]
  - INTERSTITIAL LUNG DISEASE [None]
  - LIVER DISORDER [None]
  - MITRAL VALVE INCOMPETENCE [None]
  - NAUSEA [None]
  - NORMOCHROMIC NORMOCYTIC ANAEMIA [None]
  - OCCULT BLOOD POSITIVE [None]
  - PRURITUS [None]
  - PULMONARY VALVE INCOMPETENCE [None]
  - RASH [None]
  - TACHYCARDIA [None]
  - TRICUSPID VALVE INCOMPETENCE [None]
  - VOMITING [None]
